FAERS Safety Report 7027269-1 (Version None)
Quarter: 2010Q4

REPORT INFORMATION
  Report Type: 
  Country: None (occurrence: None)
  Receive Date: 20101004
  Receipt Date: 20100922
  Transmission Date: 20110411
  Serious: Yes (Hospitalization)
  Sender: FDA-Public Use
  Company Number: US-ALEXION-A201001136

PATIENT
  Sex: Female

DRUGS (9)
  1. SOLIRIS [Suspect]
     Indication: PAROXYSMAL NOCTURNAL HAEMOGLOBINURIA
     Dosage: 600 MG, QW
     Route: 042
     Dates: start: 20100720, end: 20100810
  2. SOLIRIS [Suspect]
     Dosage: 900 MG, Q2W
     Route: 042
     Dates: start: 20100817
  3. METOCLOPRAMIDE [Suspect]
  4. AMBIEN [Concomitant]
     Dosage: UNK
     Route: 048
  5. CYMBALTA [Concomitant]
     Dosage: UNK
     Route: 048
  6. ATIVAN [Concomitant]
     Dosage: UNK
     Route: 048
  7. TALWIN                             /00052101/ [Concomitant]
     Indication: PAIN
     Dosage: UNK
     Route: 048
  8. METHIMAZOLE [Concomitant]
     Indication: BASEDOW'S DISEASE
     Dosage: UNK
     Route: 048
  9. ORTHO EVRA [Concomitant]
     Indication: CONTRACEPTION
     Dosage: UNK
     Route: 048

REACTIONS (4)
  - COLITIS [None]
  - HYPERSENSITIVITY [None]
  - OESOPHAGITIS [None]
  - POOR VENOUS ACCESS [None]
